FAERS Safety Report 22747501 (Version 2)
Quarter: 2024Q1

REPORT INFORMATION
  Report Type: Spontaneous
  Country: NZ (occurrence: NZ)
  Receive Date: 20230725
  Receipt Date: 20240212
  Transmission Date: 20240410
  Serious: Yes (Other)
  Sender: FDA-Public Use
  Company Number: NZ-UCBSA-2023036823

PATIENT
  Age: 30 Year
  Sex: Female

DRUGS (2)
  1. KEPPRA [Suspect]
     Active Substance: LEVETIRACETAM
     Indication: Seizure
     Dosage: UNK
  2. LEVETIRACETAM [Suspect]
     Active Substance: LEVETIRACETAM
     Indication: Seizure
     Dosage: UNK

REACTIONS (5)
  - Partial seizures [Unknown]
  - Generalised tonic-clonic seizure [Unknown]
  - Therapeutic response decreased [Unknown]
  - Therapeutic product ineffective [Unknown]
  - Product substitution issue [Unknown]

NARRATIVE: CASE EVENT DATE: 20230101
